FAERS Safety Report 6567351-6 (Version None)
Quarter: 2010Q1

REPORT INFORMATION
  Report Type: 
  Country: None (occurrence: None)
  Receive Date: 20100202
  Receipt Date: 20100121
  Transmission Date: 20100710
  Serious: Yes (Other)
  Sender: FDA-Public Use
  Company Number: PHHY2010CH03071

PATIENT
  Sex: Female
  Weight: 1.3 kg

DRUGS (1)
  1. TEGRETOL [Suspect]
     Indication: EPILEPSY
     Route: 064

REACTIONS (8)
  - CHOANAL ATRESIA [None]
  - CONGENITAL EYE DISORDER [None]
  - DRUG EXPOSURE DURING PREGNANCY [None]
  - EAR MALFORMATION [None]
  - HEART DISEASE CONGENITAL [None]
  - IRIS COLOBOMA [None]
  - PREMATURE BABY [None]
  - RETROGNATHIA [None]
